FAERS Safety Report 22336589 (Version 1)
Quarter: 2023Q2

REPORT INFORMATION
  Report Type: Spontaneous
  Country: US (occurrence: None)
  Receive Date: 20230518
  Receipt Date: 20230518
  Transmission Date: 20230722
  Serious: No
  Sender: FDA-Public Use
  Company Number: US-ROCHE-3175549

PATIENT
  Age: 56 Year
  Sex: Female
  Weight: 136.2 kg

DRUGS (8)
  1. ACTEMRA [Suspect]
     Active Substance: TOCILIZUMAB
     Indication: Rheumatoid arthritis
     Route: 058
     Dates: start: 20220801
  2. ACTEMRA [Suspect]
     Active Substance: TOCILIZUMAB
  3. PANTOPRAZOLE [Concomitant]
     Active Substance: PANTOPRAZOLE
     Indication: Gastrooesophageal reflux disease
     Dosage: STARTED BEFORE ACTEMRA
     Route: 048
  4. EXCEDRIN MIGRAINE [Concomitant]
     Active Substance: ACETAMINOPHEN\ASPIRIN\CAFFEINE
     Indication: Migraine
     Dosage: (2) 200 MG TABLETS; STARTED BEFORE ACTEMRA
     Route: 048
  5. CLARITIN [Concomitant]
     Active Substance: LORATADINE
     Indication: Seasonal allergy
     Dosage: STARTED BEFORE ACTEMRA
     Route: 048
  6. CRANBERRY [Concomitant]
     Active Substance: CRANBERRY
     Indication: Urinary tract infection
     Dosage: STARTED BEFORE ACTEMRA
     Route: 048
  7. ALBUTEROL [Concomitant]
     Active Substance: ALBUTEROL
     Dosage: 2 PUFFS AS NEEDED
     Route: 055
     Dates: start: 2021
  8. INHALER (UNK INGREDIENTS) [Concomitant]
     Route: 055
     Dates: start: 2021

REACTIONS (3)
  - Contusion [Recovering/Resolving]
  - Device difficult to use [Unknown]
  - Drug delivery system malfunction [Unknown]

NARRATIVE: CASE EVENT DATE: 20220905
